APPROVED DRUG PRODUCT: ALYFTREK
Active Ingredient: DEUTIVACAFTOR; TEZACAFTOR; VANZACAFTOR CALCIUM
Strength: 50MG;20MG;EQ 4MG BASE
Dosage Form/Route: TABLET;ORAL
Application: N218730 | Product #001
Applicant: VERTEX PHARMACEUTICALS INC
Approved: Dec 20, 2024 | RLD: Yes | RS: No | Type: RX

PATENTS:
Patent 9670163 | Expires: Dec 28, 2026
Patent 10022352 | Expires: Apr 9, 2027
Patent 9974781 | Expires: Apr 9, 2027
Patent 11873300 | Expires: Aug 13, 2040
Patent 8415387 | Expires: Nov 12, 2027
Patent 10081621 | Expires: Mar 25, 2031
Patent 11866450 | Expires: Feb 14, 2039
Patent 8598181 | Expires: May 1, 2027
Patent 8354427 | Expires: Jul 6, 2026
Patent 9181192 | Expires: May 17, 2032
Patent 8324242 | Expires: Aug 5, 2027
Patent 10239867 | Expires: Apr 9, 2027
Patent 11564916 | Expires: Aug 13, 2029
Patent 11639347 | Expires: Apr 9, 2027
Patent 11578062 | Expires: Mar 25, 2031
Patent 9512079 | Expires: May 17, 2032
Patent 9931334 | Expires: Dec 28, 2026
Patent 8754224 | Expires: Dec 28, 2026
Patent 7776905 | Expires: Jun 3, 2027
Patent 7495103 | Expires: May 20, 2027
Patent 7645789 | Expires: May 1, 2027
Patent 8623905 | Expires: May 1, 2027
Patent 10646481 | Expires: Aug 13, 2029
Patent 8865902 | Expires: May 17, 2032
Patent 11066417 | Expires: Feb 14, 2039
Patent 10047053 | Expires: May 17, 2032
Patent RE50453 | Expires: Jul 10, 2031
Patent 8410274 | Expires: Dec 28, 2026

EXCLUSIVITY:
Code: NCE | Date: Dec 20, 2029